FAERS Safety Report 5110736-5 (Version None)
Quarter: 2006Q3

REPORT INFORMATION
  Report Type: 
  Country: None (occurrence: None)
  Receive Date: 20060919
  Receipt Date: 20060907
  Transmission Date: 20061208
  Serious: Yes (Other)
  Sender: FDA-Public Use
  Company Number: 2006SP001408

PATIENT
  Sex: Female

DRUGS (2)
  1. PEG-INTRON [Suspect]
     Indication: HEPATITIS
  2. REBETOL [Suspect]
     Indication: HEPATITIS
     Dosage: PO
     Route: 048

REACTIONS (1)
  - PANCREATIC INSUFFICIENCY [None]
